FAERS Safety Report 14093581 (Version 1)
Quarter: 2017Q4

REPORT INFORMATION
  Report Type: Spontaneous
  Country: US (occurrence: US)
  Receive Date: 20171016
  Receipt Date: 20171016
  Transmission Date: 20180321
  Serious: Yes (Death, Other)
  Sender: FDA-Public Use
  Company Number: US-OTSUKA-2017_022318

PATIENT

DRUGS (1)
  1. SAMSCA [Suspect]
     Active Substance: TOLVAPTAN
     Indication: PRODUCT USED FOR UNKNOWN INDICATION
     Dosage: 15 MG, UNK
     Route: 048

REACTIONS (4)
  - Death [Fatal]
  - Osmotic demyelination syndrome [Unknown]
  - Hypernatraemia [Unknown]
  - Rapid correction of hyponatraemia [Unknown]

NARRATIVE: CASE EVENT DATE: 20171013
